FAERS Safety Report 19982769 (Version 1)
Quarter: 2021Q4

REPORT INFORMATION
  Report Type: Other
  Country: CY (occurrence: CY)
  Receive Date: 20211021
  Receipt Date: 20211021
  Transmission Date: 20220303
  Serious: Yes (Death)
  Sender: FDA-Public Use
  Company Number: CY-ROCHE-2937144

PATIENT

DRUGS (3)
  1. ATEZOLIZUMAB [Suspect]
     Active Substance: ATEZOLIZUMAB
     Indication: Neuroendocrine carcinoma metastatic
     Dosage: EACH 21-DAY CYCLE DURING THE INDUCTION PHASE (CYCLES 1-4) AND MAINTENANCE PHASE (CYCLE 5 ONWARD).
     Route: 042
  2. CARBOPLATIN [Suspect]
     Active Substance: CARBOPLATIN
     Indication: Neuroendocrine carcinoma metastatic
     Dosage: (AUC 5, DAY 1)?THREE WEEKLY FOR 6 CYCLES
     Route: 042
  3. ETOPOSIDE [Suspect]
     Active Substance: ETOPOSIDE
     Indication: Neuroendocrine carcinoma metastatic
     Dosage: 100 MG/M2, DAYS?1-3 THREE WEEKLY FOR 6 CYCLES
     Route: 042

REACTIONS (1)
  - Death [Fatal]
